FAERS Safety Report 9805211 (Version 1)
Quarter: 2014Q1

REPORT INFORMATION
  Report Type: Spontaneous
  Country: DE (occurrence: DE)
  Receive Date: 20140109
  Receipt Date: 20140109
  Transmission Date: 20141002
  Serious: Yes (Life-Threatening, Hospitalization)
  Sender: FDA-Public Use
  Company Number: DE-009507513-1401DEU000442

PATIENT
  Age: 46 Year
  Sex: Male
  Weight: 78 kg

DRUGS (1)
  1. TEMOZOLOMIDE [Suspect]
     Indication: GLIOBLASTOMA
     Dosage: UNK, CONTINUED DURING RADIOTHERAPY
     Route: 048
     Dates: start: 20131127, end: 20140102

REACTIONS (1)
  - Liver disorder [Not Recovered/Not Resolved]
